FAERS Safety Report 20723290 (Version 1)
Quarter: 2022Q2

REPORT INFORMATION
  Report Type: Spontaneous
  Country: FR (occurrence: FR)
  Receive Date: 20220419
  Receipt Date: 20220419
  Transmission Date: 20220721
  Serious: Yes (Hospitalization, Other)
  Sender: FDA-Public Use
  Company Number: FR-BIOGARAN-B20000248

PATIENT
  Age: 66 Year
  Sex: Male
  Weight: 97 kg

DRUGS (6)
  1. METFORMIN HYDROCHLORIDE [Suspect]
     Active Substance: METFORMIN HYDROCHLORIDE
     Indication: Type 2 diabetes mellitus
     Dosage: 3000 MILLIGRAM, ONCE A DAY (1000 MG, TID)
     Route: 065
     Dates: start: 201910, end: 2019
  2. GLUCOPHAGE [Suspect]
     Active Substance: METFORMIN HYDROCHLORIDE
     Indication: Type 2 diabetes mellitus
     Dosage: UNK
     Route: 065
     Dates: end: 2019
  3. JANUVIA [Suspect]
     Active Substance: SITAGLIPTIN PHOSPHATE
     Indication: Type 2 diabetes mellitus
     Dosage: 100 MILLIGRAM, ONCE A DAY
     Route: 065
     Dates: start: 201910, end: 2019
  4. METFORMIN HYDROCHLORIDE [Suspect]
     Active Substance: METFORMIN HYDROCHLORIDE
     Indication: Type 2 diabetes mellitus
     Dosage: UNK
     Route: 065
     Dates: start: 20180517, end: 20181005
  5. METFORMIN HYDROCHLORIDE [Suspect]
     Active Substance: METFORMIN HYDROCHLORIDE
     Indication: Type 2 diabetes mellitus
     Dosage: UNK
     Route: 065
     Dates: start: 20171220, end: 20180215
  6. GLYBURIDE [Suspect]
     Active Substance: GLYBURIDE
     Indication: Type 2 diabetes mellitus
     Dosage: 5 MILLIGRAM, ONCE A DAY (2.5 MG, BID)
     Route: 065
     Dates: start: 201910, end: 2019

REACTIONS (7)
  - Interstitial lung disease [Unknown]
  - Cardiac failure [Unknown]
  - Dyspnoea exertional [Unknown]
  - Cough [Unknown]
  - Laryngeal discomfort [Unknown]
  - Weight decreased [Unknown]
  - General physical health deterioration [Unknown]

NARRATIVE: CASE EVENT DATE: 20190101
